FAERS Safety Report 16248518 (Version 4)
Quarter: 2019Q4

REPORT INFORMATION
  Report Type: Report from Study
  Country: CA (occurrence: CA)
  Receive Date: 20190429
  Receipt Date: 20191230
  Transmission Date: 20200122
  Serious: Yes (Other)
  Sender: FDA-Public Use
  Company Number: CA-BRISTOL-MYERS SQUIBB COMPANY-BMS-2018-045648

PATIENT
  Age: 42 Year
  Sex: Female

DRUGS (1)
  1. ABATACEPT [Suspect]
     Active Substance: ABATACEPT
     Indication: RHEUMATOID ARTHRITIS
     Dosage: 750 MG, QMO
     Route: 042
     Dates: start: 20150717, end: 20191217

REACTIONS (20)
  - Nephrolithiasis [Unknown]
  - Pyrexia [Unknown]
  - Rheumatoid arthritis [Unknown]
  - Stress [Unknown]
  - Influenza like illness [Unknown]
  - Fall [Unknown]
  - Concussion [Recovering/Resolving]
  - Pain [Unknown]
  - Drug ineffective [Unknown]
  - Arthralgia [Unknown]
  - Malaise [Unknown]
  - Joint swelling [Unknown]
  - Loss of consciousness [Unknown]
  - Chills [Unknown]
  - Headache [Unknown]
  - Oropharyngeal pain [Unknown]
  - Head injury [Unknown]
  - Rhinorrhoea [Unknown]
  - Sneezing [Unknown]
  - Dizziness [Unknown]

NARRATIVE: CASE EVENT DATE: 20180611
